FAERS Safety Report 13667447 (Version 1)
Quarter: 2017Q2

REPORT INFORMATION
  Report Type: Report from Study
  Country: None (occurrence: US)
  Receive Date: 20170620
  Receipt Date: 20170620
  Transmission Date: 20170830
  Serious: Yes (Other)
  Sender: FDA-Public Use
  Company Number: US-ABBVIE-17K-163-2010804-00

PATIENT
  Age: 68 Year
  Sex: Female

DRUGS (2)
  1. HUMIRA [Suspect]
     Active Substance: ADALIMUMAB
     Indication: RHEUMATOID ARTHRITIS
     Route: 058
  2. COUMADIN [Concomitant]
     Active Substance: WARFARIN SODIUM
     Indication: PRODUCT USED FOR UNKNOWN INDICATION

REACTIONS (8)
  - Migraine [Unknown]
  - Weight decreased [Unknown]
  - Fall [Unknown]
  - Knee arthroplasty [Unknown]
  - Fibromyalgia [Unknown]
  - Osteoporosis [Unknown]
  - Cerebrovascular accident [Unknown]
  - Concussion [Unknown]

NARRATIVE: CASE EVENT DATE: 201609
